FAERS Safety Report 5606478-X (Version None)
Quarter: 2008Q1

REPORT INFORMATION
  Report Type: 
  Country: None (occurrence: None)
  Receive Date: 20080129
  Receipt Date: 20080124
  Transmission Date: 20080703
  Serious: Yes (Other)
  Sender: FDA-Public Use
  Company Number: JP-MERCK-0801USA05157

PATIENT
  Age: 50 Year
  Sex: Female

DRUGS (2)
  1. COZAAR [Suspect]
     Route: 048
  2. COZAAR [Suspect]
     Route: 048
     Dates: start: 20080101, end: 20080101

REACTIONS (2)
  - HYPOTENSION [None]
  - TACHYPHYLAXIS [None]
